FAERS Safety Report 7219093-1 (Version None)
Quarter: 2011Q1

REPORT INFORMATION
  Report Type: 
  Country: None (occurrence: None)
  Receive Date: 20110111
  Receipt Date: 20100708
  Transmission Date: 20110831
  Serious: Yes (Hospitalization, Other)
  Sender: FDA-Public Use
  Company Number: US-BAYER-200935879NA

PATIENT
  Sex: Female
  Weight: 120.46 kg

DRUGS (9)
  1. YASMIN [Suspect]
     Indication: PRODUCT USED FOR UNKNOWN INDICATION
     Dosage: UNK
  2. WELLBUTRIN [Concomitant]
     Dosage: 150
  3. TOPAMAX [Concomitant]
  4. BUPROPION HCL [Concomitant]
  5. ALBUTEROL [Concomitant]
     Route: 055
  6. YAZ [Suspect]
     Indication: PREMENSTRUAL SYNDROME
     Route: 048
     Dates: start: 20070101, end: 20090901
  7. MULTI-VITAMINS [Concomitant]
  8. UNKNOWN DRUG [Concomitant]
     Indication: IRRITABLE BOWEL SYNDROME
     Dates: start: 20071201
  9. TRAZODONE [Concomitant]

REACTIONS (6)
  - KIDNEY INFECTION [None]
  - BILIARY DYSKINESIA [None]
  - CHOLECYSTITIS [None]
  - NAUSEA [None]
  - ABDOMINAL PAIN UPPER [None]
  - DIARRHOEA [None]
